FAERS Safety Report 7151320-1 (Version None)
Quarter: 2010Q4

REPORT INFORMATION
  Report Type: 
  Country: None (occurrence: None)
  Receive Date: 20101210
  Receipt Date: 20101130
  Transmission Date: 20110411
  Serious: Yes (Other)
  Sender: FDA-Public Use
  Company Number: BR-SANOFI-AVENTIS-2010SA073521

PATIENT
  Sex: Male

DRUGS (2)
  1. CLOPIDOGREL BISULFATE [Suspect]
     Dosage: DOSE:1 UNIT(S)
     Route: 048
  2. ASPIRIN [Suspect]
     Route: 048

REACTIONS (2)
  - DECREASED APPETITE [None]
  - WEIGHT DECREASED [None]
